FAERS Safety Report 4764434-8 (Version None)
Quarter: 2005Q3

REPORT INFORMATION
  Report Type: 
  Country: None (occurrence: None)
  Receive Date: 20050906
  Receipt Date: 20050823
  Transmission Date: 20060218
  Serious: Yes (Death, Hospitalization, Other)
  Sender: FDA-Public Use
  Company Number: USA0508106211

PATIENT
  Age: 58 Year
  Sex: Female
  Weight: 132 kg

DRUGS (2)
  1. HUMALOG [Suspect]
     Indication: DIABETES MELLITUS
  2. HUMULIN N [Suspect]
     Indication: DIABETES MELLITUS

REACTIONS (7)
  - CONFUSIONAL STATE [None]
  - GANGRENE [None]
  - HYPERTENSION [None]
  - LISTLESS [None]
  - MENTAL DISORDER [None]
  - SKIN ULCER [None]
  - TOE AMPUTATION [None]
